FAERS Safety Report 25925015 (Version 1)
Quarter: 2025Q4

REPORT INFORMATION
  Report Type: Spontaneous
  Country: US (occurrence: None)
  Receive Date: 20251014
  Receipt Date: 20251014
  Transmission Date: 20260118
  Serious: Yes (Hospitalization)
  Sender: FDA-CTU
  Company Number: None

PATIENT
  Sex: Female

DRUGS (1)
  1. GLATOPA [Suspect]
     Active Substance: GLATIRAMER ACETATE
     Indication: Multiple sclerosis
     Dosage: 40 MG THREE TIMES A WEEK SUBCUTNEOUS
     Route: 058
     Dates: start: 20250205

REACTIONS (4)
  - Multiple sclerosis relapse [None]
  - Therapy interrupted [None]
  - Hypokinesia [None]
  - Multiple sclerosis [None]
